FAERS Safety Report 7462602-8 (Version None)
Quarter: 2011Q2

REPORT INFORMATION
  Report Type: 
  Country: None (occurrence: None)
  Receive Date: 20110506
  Receipt Date: 20110505
  Transmission Date: 20111010
  Serious: Yes (Death)
  Sender: FDA-Public Use
  Company Number: US-PFIZER INC-2011096926

PATIENT
  Sex: Male

DRUGS (10)
  1. ATENOLOL [Concomitant]
     Dosage: 25 MG, UNK
     Route: 048
  2. GLIPIZIDE [Concomitant]
     Dosage: 5 MG, UNK
     Route: 048
  3. DOXAZOSIN MESILATE [Concomitant]
     Dosage: 8 MG, UNK
     Route: 048
  4. PROSCAR [Concomitant]
     Dosage: 5 MG, UNK
     Route: 048
  5. ACETYLSALICYLIC ACID [Concomitant]
     Dosage: 81 MG, UNK
     Route: 048
  6. SUTENT [Suspect]
     Dosage: 50 MG, 1X/DAY, 4 WKS ON, THEN 2 WEEKS OFF
     Route: 048
  7. LIPITOR [Concomitant]
     Dosage: 10 MG, UNK
     Route: 048
  8. METFORMIN [Concomitant]
     Dosage: 1000 MG, UNK
     Route: 048
  9. VITAMIN C [Concomitant]
     Dosage: 250 MG, UNK
     Route: 048
  10. LOSARTAN POTASSIUM [Concomitant]
     Dosage: 50 MG, UNK
     Route: 048

REACTIONS (1)
  - DEATH [None]
